FAERS Safety Report 14347861 (Version 1)
Quarter: 2018Q1

REPORT INFORMATION
  Report Type: Other
  Country: ES (occurrence: ES)
  Receive Date: 20180103
  Receipt Date: 20180103
  Transmission Date: 20180509
  Serious: Yes (Hospitalization)
  Sender: FDA-Public Use
  Company Number: ES-VALIDUS PHARMACEUTICALS LLC-ES-2018VAL000009

PATIENT
  Age: 86 Year
  Sex: Female

DRUGS (2)
  1. EDEMOX                             /00016901/ [Suspect]
     Active Substance: ACETAZOLAMIDE
     Indication: FLUID OVERLOAD
     Dosage: 250 MG, QD
     Route: 048
     Dates: start: 20170421, end: 20170614
  2. FUROSEMIDE. [Suspect]
     Active Substance: FUROSEMIDE
     Indication: FLUID OVERLOAD
     Dosage: 40 MG, QD
     Route: 048
     Dates: start: 20170421, end: 20171129

REACTIONS (2)
  - Drug interaction [Recovered/Resolved]
  - Acute kidney injury [Recovered/Resolved]

NARRATIVE: CASE EVENT DATE: 20170613
